FAERS Safety Report 5834264-4 (Version None)
Quarter: 2008Q3

REPORT INFORMATION
  Report Type: 
  Country: None (occurrence: None)
  Receive Date: 20080722
  Receipt Date: 20071116
  Transmission Date: 20090109
  Serious: Yes (Other)
  Sender: FDA-Public Use
  Company Number: 2007BI024334

PATIENT
  Sex: Female
  Weight: 47.1741 kg

DRUGS (3)
  1. AVONEX [Suspect]
     Indication: MULTIPLE SCLEROSIS
     Dosage: 30 UG;QW;IM
     Route: 030
     Dates: start: 20060301
  2. ZOLOFT [Concomitant]
  3. CLONAZEPAM [Concomitant]

REACTIONS (13)
  - BREATH ODOUR [None]
  - CONVULSION [None]
  - DEPRESSION [None]
  - FEELING COLD [None]
  - FEELING HOT [None]
  - INFLUENZA LIKE ILLNESS [None]
  - MUSCLE SPASMS [None]
  - NASOPHARYNGITIS [None]
  - PARAESTHESIA [None]
  - TREMOR [None]
  - VISION BLURRED [None]
  - VISUAL IMPAIRMENT [None]
  - WEIGHT DECREASED [None]
